FAERS Safety Report 5038587-0 (Version None)
Quarter: 2006Q2

REPORT INFORMATION
  Report Type: 
  Country: None (occurrence: None)
  Receive Date: 20060629
  Receipt Date: 20060620
  Transmission Date: 20061013
  Serious: Yes (Hospitalization)
  Sender: FDA-Public Use
  Company Number: PHEH2006US08030

PATIENT
  Age: 23 Year
  Sex: Female

DRUGS (1)
  1. PAMIDRONATE DISODIUM [Suspect]
     Indication: BLOOD CALCIUM INCREASED
     Dosage: 90 MG, ONCE/SINGLE
     Dates: start: 20060505, end: 20060505

REACTIONS (7)
  - ARTHRALGIA [None]
  - ASTHENIA [None]
  - FEELING HOT AND COLD [None]
  - MICTURITION URGENCY [None]
  - MYALGIA [None]
  - PAIN IN JAW [None]
  - PARAESTHESIA [None]
